FAERS Safety Report 11911628 (Version 1)
Quarter: 2016Q1

REPORT INFORMATION
  Report Type: Report from Study
  Country: US (occurrence: US)
  Receive Date: 20160112
  Receipt Date: 20160112
  Transmission Date: 20160526
  Serious: No
  Sender: FDA-Public Use
  Company Number: GXBR2015US002770

PATIENT
  Sex: Female

DRUGS (2)
  1. HISTRELIN [Concomitant]
     Active Substance: HISTRELIN
     Indication: PRECOCIOUS PUBERTY
     Dosage: UNK DF, UNK
  2. OMNITROPE [Suspect]
     Active Substance: SOMATROPIN
     Indication: BODY HEIGHT BELOW NORMAL
     Dosage: 1.1 MG, QD
     Dates: start: 20151211

REACTIONS (1)
  - Headache [Recovered/Resolved]
